FAERS Safety Report 10285984 (Version 1)
Quarter: 2014Q3

REPORT INFORMATION
  Report Type: Spontaneous
  Country: US (occurrence: US)
  Receive Date: 20140709
  Receipt Date: 20140709
  Transmission Date: 20150326
  Serious: No
  Sender: FDA-Public Use
  Company Number: US-ASTRAZENECA-2014SE47538

PATIENT
  Age: 33071 Day
  Sex: Female
  Weight: 55.3 kg

DRUGS (7)
  1. RISPERIDONE. [Concomitant]
     Active Substance: RISPERIDONE
     Indication: SLEEP DISORDER
  2. SERTRALINE [Concomitant]
     Active Substance: SERTRALINE HYDROCHLORIDE
     Indication: DEPRESSION
     Route: 048
  3. AMITRIPTYLINE [Concomitant]
     Active Substance: AMITRIPTYLINE
     Indication: SLEEP DISORDER
     Route: 048
  4. QUETIAPINE FUMARATE. [Suspect]
     Active Substance: QUETIAPINE FUMARATE
     Indication: SLEEP DISORDER
     Route: 048
     Dates: start: 20140620
  5. RISPERIDONE. [Concomitant]
     Active Substance: RISPERIDONE
     Indication: VASCULAR DEMENTIA
  6. DILTIAZEM [Concomitant]
     Active Substance: DILTIAZEM
     Indication: HYPERTENSION
     Route: 048
  7. QUETIAPINE FUMARATE. [Suspect]
     Active Substance: QUETIAPINE FUMARATE
     Indication: VASCULAR DEMENTIA
     Route: 048
     Dates: start: 20140620

REACTIONS (11)
  - Feeling hot [Unknown]
  - Off label use [Not Recovered/Not Resolved]
  - Hypertension [Not Recovered/Not Resolved]
  - Abdominal pain [Not Recovered/Not Resolved]
  - Sleep talking [Not Recovered/Not Resolved]
  - Decreased appetite [Not Recovered/Not Resolved]
  - Feeling abnormal [Not Recovered/Not Resolved]
  - Adverse event [Not Recovered/Not Resolved]
  - Malaise [Not Recovered/Not Resolved]
  - Grunting [Not Recovered/Not Resolved]
  - Moaning [Not Recovered/Not Resolved]

NARRATIVE: CASE EVENT DATE: 20140620
